FAERS Safety Report 5047913-8 (Version None)
Quarter: 2006Q3

REPORT INFORMATION
  Report Type: 
  Country: None (occurrence: None)
  Receive Date: 20060703
  Receipt Date: 20060628
  Transmission Date: 20061208
  Serious: Yes (Hospitalization)
  Sender: FDA-Public Use
  Company Number: T200600706

PATIENT
  Age: 57 Year
  Sex: Male

DRUGS (13)
  1. MD-GASTROVIEW(DIATRIZOATE MEGLUMINE, DIATRIZOATE SODIUM) SOLUTION, 120 [Suspect]
     Indication: COMPUTERISED TOMOGRAM ABDOMEN
     Dosage: 60 ML, SINGLE, ORAL
     Route: 048
     Dates: start: 20060624, end: 20060624
  2. PREVACID [Concomitant]
  3. LOPRESSOR [Concomitant]
  4. NEURONTIN [Concomitant]
  5. ESZOPICLONE [Concomitant]
  6. LEXAPRO [Concomitant]
  7. VYTORIN (SIMVASTATIN, EZETIMIBE) [Concomitant]
  8. TRICOR [Concomitant]
  9. LASIX /00032601/ (FUROSEMIDE) [Concomitant]
  10. WELLBUTRIN /00700501/ (BUPROPION) [Concomitant]
  11. NITRO (GLYCERYL TRINITRATE) [Concomitant]
  12. METANX [Concomitant]
  13. PACERONE [Concomitant]

REACTIONS (3)
  - CHEST PAIN [None]
  - PRURITUS [None]
  - URTICARIA [None]
